FAERS Safety Report 15076571 (Version 1)
Quarter: 2018Q2

REPORT INFORMATION
  Report Type: Report from Study
  Country: KR (occurrence: KR)
  Receive Date: 20180627
  Receipt Date: 20180627
  Transmission Date: 20180711
  Serious: Yes (Other)
  Sender: FDA-Public Use
  Company Number: KR-MYLANLABS-2018M1045763

PATIENT
  Age: 55 Year
  Sex: Male

DRUGS (4)
  1. BASILIXIMAB [Suspect]
     Active Substance: BASILIXIMAB
     Indication: IMMUNOSUPPRESSANT DRUG THERAPY
     Dosage: ONE WEEK DAILY
     Route: 042
  2. MYCOPHENOLATE MOFETIL. [Suspect]
     Active Substance: MYCOPHENOLATE MOFETIL
     Indication: IMMUNOSUPPRESSANT DRUG THERAPY
     Dosage: THE ACCUMULATIVE DOSE WAS 1035120MG AND THE AVERAGE DOSE WAS 601.8MG/DAY
     Route: 065
  3. TACROLIMUS. [Suspect]
     Active Substance: TACROLIMUS
     Indication: IMMUNOSUPPRESSANT DRUG THERAPY
     Dosage: THE ACCUMULATIVE DOSE WAS 1765MG AND THE AVERAGE DOSE WAS 3.7MG/DAY
     Route: 065
  4. CYCLOSPORIN [Suspect]
     Active Substance: CYCLOSPORINE
     Indication: IMMUNOSUPPRESSANT DRUG THERAPY
     Dosage: THE ACCUMULATIVE DOSE WAS 142468MG AND THE AVERAGE DOSE WAS 75.0MG/DAY
     Route: 065

REACTIONS (2)
  - Nonkeratinising carcinoma of nasopharynx [Recovered/Resolved]
  - Pharyngeal inflammation [Unknown]
